FAERS Safety Report 7310820-1 (Version None)
Quarter: 2011Q1

REPORT INFORMATION
  Report Type: 
  Country: None (occurrence: None)
  Receive Date: 20110224
  Receipt Date: 20110218
  Transmission Date: 20110831
  Serious: Yes (Death, Hospitalization)
  Sender: FDA-Public Use
  Company Number: PHBS2008US06804

PATIENT
  Sex: Male

DRUGS (14)
  1. ARANESP [Concomitant]
  2. LASIX [Concomitant]
     Dosage: 60 MG, UNK
  3. METOPROLOL [Concomitant]
     Dosage: 20 MG PER DAY
  4. PREDNISONE [Concomitant]
     Dosage: 10 MG ONCE A DAY
  5. FOLIC ACID [Concomitant]
  6. LISINOPRIL [Concomitant]
     Dosage: 2.5 MG PER DAY
  7. NAPROXEN [Concomitant]
     Dosage: DAILY
  8. VIDAZA [Concomitant]
     Dosage: UNK
  9. LASIX [Concomitant]
     Dosage: 40 MG ALTERNATING WITH 60 MG DAILY
  10. COUMADIN [Concomitant]
  11. EXJADE [Suspect]
     Indication: MYELODYSPLASTIC SYNDROME
     Dosage: 500 MG
  12. ALLOPURINOL [Concomitant]
     Dosage: 200 MG ONCE A DAY
  13. DIGOXIN [Concomitant]
     Dosage: 0.5 MG ONCE A DAY
  14. NEUPOGEN [Concomitant]

REACTIONS (4)
  - CARDIAC DISORDER [None]
  - DIARRHOEA [None]
  - NEOPLASM MALIGNANT [None]
  - RENAL DISORDER [None]
